FAERS Safety Report 6675514-4 (Version None)
Quarter: 2010Q2

REPORT INFORMATION
  Report Type: 
  Country: None (occurrence: None)
  Receive Date: 20100409
  Receipt Date: 20100329
  Transmission Date: 20101027
  Serious: Yes (Other)
  Sender: FDA-Public Use
  Company Number: FR-TEVA-229914ISR

PATIENT
  Age: 55 Year
  Sex: Male

DRUGS (2)
  1. CEFTRIAXONE [Suspect]
     Indication: WHIPPLE'S DISEASE
     Route: 042
  2. BACTRIM [Suspect]
     Indication: WHIPPLE'S DISEASE

REACTIONS (1)
  - IMMUNE RECONSTITUTION SYNDROME [None]
